FAERS Safety Report 7415189-X (Version None)
Quarter: 2011Q2

REPORT INFORMATION
  Report Type: 
  Country: None (occurrence: None)
  Receive Date: 20110414
  Receipt Date: 20110408
  Transmission Date: 20111010
  Serious: Yes (Other)
  Sender: FDA-Public Use
  Company Number: PHHO2010BE14285

PATIENT
  Sex: Female
  Weight: 59.8 kg

DRUGS (2)
  1. FTY [Suspect]
     Dosage: 0.5MG
     Route: 048
     Dates: start: 20090805
  2. FTY [Suspect]
     Indication: MULTIPLE SCLEROSIS
     Dosage: UNK
     Route: 048
     Dates: start: 20080805, end: 20090804

REACTIONS (1)
  - SKIN LESION [None]
